FAERS Safety Report 7346180-X (Version None)
Quarter: 2011Q1

REPORT INFORMATION
  Report Type: 
  Country: None (occurrence: None)
  Receive Date: 20110311
  Receipt Date: 20110307
  Transmission Date: 20110831
  Serious: Yes (Death, Hospitalization)
  Sender: FDA-Public Use
  Company Number: PHHY2010TW42042

PATIENT
  Sex: Female
  Weight: 58 kg

DRUGS (1)
  1. ACLASTA/ZOLEDRONATE [Suspect]
     Indication: OSTEOPOROSIS
     Dosage: 5 MG, UNK
     Route: 042
     Dates: start: 20100225

REACTIONS (13)
  - HYPOGLYCAEMIA [None]
  - DEATH [None]
  - PNEUMONIA [None]
  - CARDIAC FAILURE CONGESTIVE [None]
  - DYSPNOEA [None]
  - URINARY TRACT INFECTION [None]
  - SJOGREN'S SYNDROME [None]
  - GASTRIC ULCER [None]
  - LOSS OF CONSCIOUSNESS [None]
  - DYSKINESIA [None]
  - TYPE 2 DIABETES MELLITUS [None]
  - SPINAL COMPRESSION FRACTURE [None]
  - PAIN [None]
